FAERS Safety Report 9749195 (Version 2)
Quarter: 2014Q1

REPORT INFORMATION
  Report Type: Spontaneous
  Country: US (occurrence: US)
  Receive Date: 20131212
  Receipt Date: 20140312
  Transmission Date: 20141002
  Serious: No
  Sender: FDA-Public Use
  Company Number: US-INCYTE CORPORATION-2013IN002325

PATIENT
  Sex: Female
  Weight: 93.42 kg

DRUGS (9)
  1. JAKAFI [Suspect]
     Indication: MYELOFIBROSIS
     Dosage: 20 MG, BID
     Route: 048
     Dates: start: 201309
  2. METFORMIN [Concomitant]
  3. DIOVAN [Concomitant]
  4. AMLODIPINE [Concomitant]
  5. LEVOTHYROXINE [Concomitant]
  6. ANUSOL                             /00117301/ [Concomitant]
  7. CENTRUM SILVER                     /02363801/ [Concomitant]
  8. VITAMIN D                          /00107901/ [Concomitant]
  9. FISH OIL [Concomitant]

REACTIONS (2)
  - Upper respiratory tract infection [Recovered/Resolved]
  - Contusion [Recovering/Resolving]
